FAERS Safety Report 12640116 (Version 1)
Quarter: 2016Q3

REPORT INFORMATION
  Report Type: Report from Study
  Country: US (occurrence: US)
  Receive Date: 20160810
  Receipt Date: 20160810
  Transmission Date: 20161109
  Serious: Yes (Hospitalization, Other)
  Sender: FDA-Public Use
  Company Number: US-BAYER-2016-009920

PATIENT
  Age: 73 Year
  Sex: Female
  Weight: 55.78 kg

DRUGS (9)
  1. ADEMPAS [Suspect]
     Active Substance: RIOCIGUAT
     Indication: PULMONARY HYPERTENSION
     Dosage: 2.5 MG, TID
     Route: 048
  2. ADEMPAS [Suspect]
     Active Substance: RIOCIGUAT
     Indication: PULMONARY HYPERTENSION
     Dosage: 2.5 MG, TID
     Route: 048
  3. DIPHENHYDRAMINE. [Concomitant]
     Active Substance: DIPHENHYDRAMINE
     Dosage: UNK UNK, PRN
  4. WARFARIN [Concomitant]
     Active Substance: WARFARIN
  5. OXYGEN. [Concomitant]
     Active Substance: OXYGEN
  6. ADEMPAS [Suspect]
     Active Substance: RIOCIGUAT
     Indication: PULMONARY HYPERTENSION
     Dosage: 2.5 MG, TID
     Route: 048
  7. ADEMPAS [Suspect]
     Active Substance: RIOCIGUAT
     Indication: PULMONARY HYPERTENSION
     Dosage: UNK
     Dates: start: 20150309
  8. COUMADIN [Concomitant]
     Active Substance: WARFARIN SODIUM
  9. ADEMPAS [Suspect]
     Active Substance: RIOCIGUAT
     Indication: PULMONARY HYPERTENSION
     Dosage: 2.5 MG, TID
     Route: 048

REACTIONS (15)
  - Coagulopathy [Unknown]
  - Cardiac disorder [Unknown]
  - Epistaxis [None]
  - Pruritus [Unknown]
  - Dysuria [Unknown]
  - Pharyngitis [Unknown]
  - Oedema peripheral [Unknown]
  - Rhinitis [Unknown]
  - Dyspnoea exertional [Not Recovered/Not Resolved]
  - Hepatic infection [Unknown]
  - Abscess [Unknown]
  - Lung disorder [Unknown]
  - Hypersomnia [None]
  - Rehabilitation therapy [Unknown]
  - Urine output decreased [Unknown]

NARRATIVE: CASE EVENT DATE: 201602
